FAERS Safety Report 21213185 (Version 3)
Quarter: 2025Q3

REPORT INFORMATION
  Report Type: Report from Study
  Country: US (occurrence: US)
  Receive Date: 20220815
  Receipt Date: 20250827
  Transmission Date: 20251021
  Serious: Yes (Other)
  Sender: ABBVIE
  Company Number: US-ABBVIE-22K-163-4223257-00

PATIENT
  Age: 57 Year
  Sex: Female

DRUGS (5)
  1. HUMIRA [Suspect]
     Active Substance: ADALIMUMAB
     Indication: Uveitis
     Dosage: FORM STRENGTH 40 MG END DATE 2021?SOLUTION FOR INJECTION IN PRE-FILLED PEN
     Route: 058
     Dates: start: 20211229
  2. HUMIRA [Suspect]
     Active Substance: ADALIMUMAB
     Dosage: START DATE 2021 FORM STRENGTH 40 MG?SOLUTION FOR INJECTION IN PRE-FILLED SYRINGE
     Route: 058
     Dates: start: 20211229
  3. HUMIRA [Suspect]
     Active Substance: ADALIMUMAB
     Dosage: FORM STRENGTH 40 MG?SOLUTION FOR INJECTION IN PRE-FILLED SYRINGE
     Route: 058
  4. HUMIRA [Suspect]
     Active Substance: ADALIMUMAB
     Dosage: FORM STRENGTH 40 MG END DATE 2021?SOLUTION FOR INJECTION IN PRE-FILLED SYRINGE
     Route: 058
     Dates: start: 20210108
  5. METHOTREXATE [Concomitant]
     Active Substance: METHOTREXATE
     Indication: Product used for unknown indication

REACTIONS (9)
  - Glaucoma [Not Recovered/Not Resolved]
  - Loss of consciousness [Unknown]
  - Nasopharyngitis [Unknown]
  - Night sweats [Unknown]
  - COVID-19 [Unknown]
  - Facial pain [Unknown]
  - Gastroenteritis viral [Unknown]
  - Eye pain [Unknown]
  - Retinal tear [Unknown]

NARRATIVE: CASE EVENT DATE: 20220101
